FAERS Safety Report 8901807 (Version 1)
Quarter: 2012Q4

REPORT INFORMATION
  Report Type: Spontaneous
  Country: FR (occurrence: None)
  Receive Date: 20121105
  Receipt Date: 20121105
  Transmission Date: 20130627
  Serious: Yes (Death, Congenital Anomaly)
  Sender: FDA-Public Use
  Company Number: 7169772

PATIENT
  Sex: Male

DRUGS (3)
  1. LEVOTHYROX [Suspect]
     Dosage: product taken by mother
  2. PROGRAF [Suspect]
     Dosage: product taken by mother
  3. CORTANCYL [Suspect]
     Dosage: product taken by mother

REACTIONS (3)
  - VACTERL syndrome [None]
  - Maternal drugs affecting foetus [None]
  - Abortion induced [None]
